FAERS Safety Report 7318721-X (Version None)
Quarter: 2011Q1

REPORT INFORMATION
  Report Type: 
  Country: None (occurrence: None)
  Receive Date: 20110228
  Receipt Date: 20100104
  Transmission Date: 20110831
  Serious: No
  Sender: FDA-Public Use
  Company Number: A0837421A

PATIENT
  Age: 67 Year
  Sex: Male

DRUGS (4)
  1. IMITREX [Suspect]
     Indication: CLUSTER HEADACHE
     Dosage: 6MG AS REQUIRED
     Route: 058
     Dates: start: 20050101
  2. PREDNISONE [Concomitant]
  3. SIMVASTATIN [Concomitant]
  4. PRILOSEC [Concomitant]

REACTIONS (2)
  - GASTROOESOPHAGEAL REFLUX DISEASE [None]
  - CHEST PAIN [None]
